FAERS Safety Report 10535530 (Version 1)
Quarter: 2014Q4

REPORT INFORMATION
  Report Type: Spontaneous
  Country: US (occurrence: US)
  Receive Date: 20141022
  Receipt Date: 20141022
  Transmission Date: 20150529
  Serious: No
  Sender: FDA-Public Use
  Company Number: US-RECKITT BENCKISER PHARMACEUTICAL, INC-RB-58535-2013

PATIENT

DRUGS (5)
  1. SUBOXONE [Suspect]
     Active Substance: BUPRENORPHINE HYDROCHLORIDE\NALOXONE HYDROCHLORIDE
     Dosage: SUBOXONE FILM; TOOK SEVERAL 8 MG DOSES INSTEAD OF PRESCRIBED 2 MG DOSES
     Route: 060
     Dates: start: 20130911
  2. DIAZEPAM. [Concomitant]
     Active Substance: DIAZEPAM
     Indication: ANXIETY
     Dosage: TAKEN EVERY 6-8 HOURS AS NEEDED
     Route: 048
     Dates: end: 20130910
  3. SUBOXONE [Suspect]
     Active Substance: BUPRENORPHINE HYDROCHLORIDE\NALOXONE HYDROCHLORIDE
     Dosage: SUBOXONE FILM; TOOK 4 MG DOSES AT UNKNOWN FREQUENCY
     Route: 060
     Dates: start: 20130909, end: 20130910
  4. CLONAZEPAM. [Concomitant]
     Active Substance: CLONAZEPAM
     Indication: ANXIETY
     Route: 048
  5. SUBOXONE [Suspect]
     Active Substance: BUPRENORPHINE HYDROCHLORIDE\NALOXONE HYDROCHLORIDE
     Indication: DRUG DEPENDENCE
     Dosage: SUBOXONE FILM; TOOK A 2 MG PIECE AND LATER ON THE SAME DAY THE REMAINING 6 MG PIECE
     Route: 060
     Dates: start: 20130908, end: 20130908

REACTIONS (10)
  - Off label use [Recovered/Resolved]
  - Vomiting [Recovered/Resolved]
  - Wrong technique in drug usage process [Recovered/Resolved]
  - Feeling of body temperature change [Recovering/Resolving]
  - Drug dependence [Not Recovered/Not Resolved]
  - Tremor [Recovered/Resolved]
  - Extra dose administered [Unknown]
  - Drug withdrawal syndrome [Recovering/Resolving]
  - Hyperhidrosis [Recovered/Resolved]
  - Piloerection [Recovering/Resolving]

NARRATIVE: CASE EVENT DATE: 20130908
